FAERS Safety Report 7961798-9 (Version None)
Quarter: 2011Q4

REPORT INFORMATION
  Report Type: 
  Country: None (occurrence: None)
  Receive Date: 20111207
  Receipt Date: 20111125
  Transmission Date: 20120403
  Serious: Yes (Other)
  Sender: FDA-Public Use
  Company Number: ZA-JNJFOC-20111111483

PATIENT

DRUGS (1)
  1. REVELLEX [Suspect]
     Indication: CROHN'S DISEASE
     Route: 042

REACTIONS (1)
  - LUPUS-LIKE SYNDROME [None]
